FAERS Safety Report 11893709 (Version 1)
Quarter: 2016Q1

REPORT INFORMATION
  Report Type: Spontaneous
  Country: US (occurrence: US)
  Receive Date: 20160106
  Receipt Date: 20160106
  Transmission Date: 20160526
  Serious: No
  Sender: FDA-Public Use
  Company Number: US-ACTELION PHARMACEUTICALS US, INC.-A-NJ2015-129219

PATIENT
  Age: 67 Year
  Sex: Male

DRUGS (17)
  1. PREDNISONE. [Concomitant]
     Active Substance: PREDNISONE
  2. BILOBAN [Concomitant]
  3. MVI [Concomitant]
     Active Substance: VITAMINS
  4. AMBIEN [Concomitant]
     Active Substance: ZOLPIDEM TARTRATE
  5. WELCHOL [Concomitant]
     Active Substance: COLESEVELAM HYDROCHLORIDE
  6. LIDODERM [Concomitant]
     Active Substance: LIDOCAINE
  7. PAROXETINE [Concomitant]
     Active Substance: PAROXETINE\PAROXETINE HYDROCHLORIDE
  8. KRILL OIL [Concomitant]
     Active Substance: DIETARY SUPPLEMENT
  9. LEVOFLOXACIN. [Concomitant]
     Active Substance: LEVOFLOXACIN
  10. VALCHLOR [Suspect]
     Active Substance: MECHLORETHAMINE
     Indication: MYCOSIS FUNGOIDES
     Dosage: UNK, QD TO AFFECTED AREAS
     Route: 061
     Dates: start: 201511
  11. ZETIA [Concomitant]
     Active Substance: EZETIMIBE
  12. SLEEP AID [Concomitant]
     Active Substance: DIPHENHYDRAMINE HYDROCHLORIDE\DOXYLAMINE SUCCINATE
  13. ASA [Concomitant]
     Active Substance: ASPIRIN
  14. AMLODIPIN [Concomitant]
     Active Substance: AMLODIPINE BESYLATE
  15. TAMSULOSIN [Concomitant]
     Active Substance: TAMSULOSIN
  16. VERAMYST [Concomitant]
     Active Substance: FLUTICASONE FUROATE
     Route: 055
  17. CLINDAMYCIN [Concomitant]
     Active Substance: CLINDAMYCIN\CLINDAMYCIN PHOSPHATE

REACTIONS (1)
  - Application site vesicles [Unknown]
